FAERS Safety Report 8106556 (Version 2)
Quarter: 2014Q3

REPORT INFORMATION
  Report Type: Spontaneous
  Country: US (occurrence: US)
  Receive Date: 20110825
  Receipt Date: 20140725
  Transmission Date: 20150326
  Serious: Yes (Death, Hospitalization)
  Sender: FDA-Public Use
  Company Number: US-GLAXOSMITHKLINE-A0834432A

PATIENT
  Sex: Male
  Weight: 102.3 kg

DRUGS (5)
  1. LIPITOR [Concomitant]
     Active Substance: ATORVASTATIN CALCIUM
  2. TOPROL XL [Concomitant]
     Active Substance: METOPROLOL SUCCINATE
  3. ENALAPRIL [Concomitant]
     Active Substance: ENALAPRIL
  4. NORVASC [Concomitant]
     Active Substance: AMLODIPINE BESYLATE
  5. AVANDIA [Suspect]
     Active Substance: ROSIGLITAZONE MALEATE
     Indication: DIABETES MELLITUS
     Route: 048
     Dates: start: 19990501, end: 20090111

REACTIONS (6)
  - Cardiac failure congestive [Unknown]
  - Cerebrovascular disorder [Unknown]
  - Transient ischaemic attack [Unknown]
  - Disease progression [Fatal]
  - Atrial fibrillation [Unknown]
  - Cerebrovascular accident [Unknown]
